FAERS Safety Report 18193719 (Version 1)
Quarter: 2020Q3

REPORT INFORMATION
  Report Type: Spontaneous
  Country: DE (occurrence: DE)
  Receive Date: 20200825
  Receipt Date: 20200825
  Transmission Date: 20201103
  Serious: Yes (Hospitalization)
  Sender: FDA-Public Use
  Company Number: DE-MICRO LABS LIMITED-ML2020-02475

PATIENT
  Age: 79 Year
  Sex: Female
  Weight: 64 kg

DRUGS (4)
  1. DENOSUMAB [Concomitant]
     Active Substance: DENOSUMAB
     Dosage: 1X PER MONTH
  2. EXEMESTAN [Concomitant]
     Active Substance: EXEMESTANE
     Dosage: 25 MG, 1?0?0?0
  3. CANDESARTAN. [Concomitant]
     Active Substance: CANDESARTAN
     Dosage: 16 MG, 1?0?0?0
  4. CELECOXIB. [Suspect]
     Active Substance: CELECOXIB
     Dosage: 1?0?0?0

REACTIONS (6)
  - Vomiting [Unknown]
  - Vertigo [Unknown]
  - Fall [Unknown]
  - Asthenia [Unknown]
  - Nausea [Unknown]
  - Speech disorder [Unknown]
